FAERS Safety Report 11791138 (Version 2)
Quarter: 2016Q1

REPORT INFORMATION
  Report Type: Spontaneous
  Country: None (occurrence: US)
  Receive Date: 20151201
  Receipt Date: 20160104
  Transmission Date: 20160525
  Serious: No
  Sender: FDA-Public Use
  Company Number: US-TOLMAR INC.-1044863

PATIENT
  Age: 90 Year
  Sex: Male
  Weight: 71.36 kg

DRUGS (1)
  1. DICLOFENAC SODIUM GEL, 3% [Suspect]
     Active Substance: DICLOFENAC SODIUM
     Indication: SKIN CANCER
     Route: 061
     Dates: start: 20151111, end: 20151118

REACTIONS (2)
  - Drug ineffective for unapproved indication [Unknown]
  - Product physical consistency issue [Unknown]

NARRATIVE: CASE EVENT DATE: 201511
